FAERS Safety Report 7998074-4 (Version None)
Quarter: 2011Q4

REPORT INFORMATION
  Report Type: 
  Country: None (occurrence: None)
  Receive Date: 20111221
  Receipt Date: 20110105
  Transmission Date: 20120403
  Serious: No
  Sender: FDA-Public Use
  Company Number: US-GLAXOSMITHKLINE-A0903341A

PATIENT
  Age: 80 Year
  Sex: Female

DRUGS (5)
  1. DIOVAN [Concomitant]
  2. LEVOTHYROXINE SODIUM [Concomitant]
  3. HYDROCHLOROTHIAZIDE [Concomitant]
     Indication: FLUID RETENTION
  4. PAIN MEDICATION [Concomitant]
  5. LOVAZA [Suspect]
     Indication: BLOOD TRIGLYCERIDES INCREASED
     Dosage: 4CAP PER DAY
     Route: 048
     Dates: start: 20100701

REACTIONS (2)
  - BACK PAIN [None]
  - MYALGIA [None]
